FAERS Safety Report 9668052 (Version 2)
Quarter: 2013Q4

REPORT INFORMATION
  Report Type: Spontaneous
  Country: US (occurrence: None)
  Receive Date: 20131101
  Receipt Date: 20131202
  Transmission Date: 20140711
  Serious: Yes (Other)
  Sender: FDA-Public Use
  Company Number: 2013-US-002293

PATIENT
  Age: 40 Year
  Sex: Female

DRUGS (2)
  1. XYREM [Suspect]
     Indication: NARCOLEPSY
     Route: 048
     Dates: start: 200406
  2. XYREM [Suspect]
     Indication: CATAPLEXY
     Route: 048
     Dates: start: 200406

REACTIONS (1)
  - Breast cancer female [None]
